FAERS Safety Report 7367730-3 (Version None)
Quarter: 2011Q1

REPORT INFORMATION
  Report Type: 
  Country: None (occurrence: None)
  Receive Date: 20110322
  Receipt Date: 20110318
  Transmission Date: 20110831
  Serious: Yes (Other)
  Sender: FDA-Public Use
  Company Number: US-ABBOTT-11P-163-0712890-00

PATIENT
  Age: 18 Year
  Sex: Male
  Weight: 81.8 kg

DRUGS (13)
  1. FENTANYL [Concomitant]
     Indication: INDUCTION OF ANAESTHESIA
  2. LIDOCAINE [Concomitant]
     Indication: INDUCTION OF ANAESTHESIA
  3. ISOFLURANE [Concomitant]
     Indication: MAINTENANCE OF ANAESTHESIA
  4. SEVOFLURANE [Suspect]
     Indication: ANAESTHESIA
     Dosage: 2 L/MIN
  5. MORPHINE [Concomitant]
     Indication: ANALGESIC THERAPY
  6. FENTANYL [Concomitant]
     Indication: ANALGESIC THERAPY
  7. LACTATED RINGER'S [Concomitant]
     Indication: PRODUCT USED FOR UNKNOWN INDICATION
  8. PROPOFOL [Concomitant]
     Indication: INDUCTION OF ANAESTHESIA
  9. ROCURONIUM [Concomitant]
     Indication: INDUCTION OF ANAESTHESIA
  10. RED BLOOD CELLS [Concomitant]
     Indication: HAEMORRHAGE
  11. NEO-SYNEPHRINOL [Concomitant]
     Indication: PRODUCT USED FOR UNKNOWN INDICATION
  12. OXYGEN [Concomitant]
     Indication: PRODUCT USED FOR UNKNOWN INDICATION
  13. ZOSYN [Concomitant]
     Indication: PRODUCT USED FOR UNKNOWN INDICATION

REACTIONS (2)
  - NEPHROGENIC DIABETES INSIPIDUS [None]
  - POLYURIA [None]
